FAERS Safety Report 24679252 (Version 3)
Quarter: 2024Q4

REPORT INFORMATION
  Report Type: Spontaneous
  Country: JP (occurrence: JP)
  Receive Date: 20241129
  Receipt Date: 20241220
  Transmission Date: 20250115
  Serious: Yes (Hospitalization)
  Sender: ROCHE
  Company Number: JP-CHUGAI-2024024707

PATIENT
  Age: 60 Year
  Sex: Male
  Weight: 63.9 kg

DRUGS (7)
  1. AVASTIN [Suspect]
     Active Substance: BEVACIZUMAB
     Indication: Hepatocellular carcinoma
     Dosage: 800 MILLIGRAM, ONCE/3WEEKS
     Route: 042
     Dates: start: 20230801, end: 20240417
  2. TECENTRIQ [Suspect]
     Active Substance: ATEZOLIZUMAB
     Indication: Hepatocellular carcinoma
     Dosage: 1200 MILLIGRAM, ONCE/3WEEKS
     Route: 042
     Dates: start: 20230801, end: 20240417
  3. AMLODIPINE\TELMISARTAN [Concomitant]
     Active Substance: AMLODIPINE\TELMISARTAN
     Dosage: UNK
     Route: 050
  4. LIPIDIL [Concomitant]
     Active Substance: FENOFIBRATE
     Dosage: UNK
     Route: 050
  5. TRAMCET [Concomitant]
     Active Substance: ACETAMINOPHEN\TRAMADOL
     Dosage: UNK
     Route: 050
  6. NAUZELIN [Concomitant]
     Active Substance: DOMPERIDONE
     Dosage: UNK
     Route: 050
  7. PREGABALIN [Concomitant]
     Active Substance: PREGABALIN
     Dosage: UNK
     Route: 050

REACTIONS (5)
  - Cytokine release syndrome [Recovered/Resolved]
  - Thyroiditis subacute [Recovered/Resolved]
  - Acute kidney injury [Recovered/Resolved]
  - Myelopathy [Unknown]
  - Dehydration [Recovered/Resolved]

NARRATIVE: CASE EVENT DATE: 20240503
